FAERS Safety Report 24894341 (Version 2)
Quarter: 2025Q1

REPORT INFORMATION
  Report Type: Spontaneous
  Country: JP (occurrence: JP)
  Receive Date: 20250128
  Receipt Date: 20250311
  Transmission Date: 20250409
  Serious: Yes (Hospitalization)
  Sender: NOVARTIS
  Company Number: JP-002147023-NVSJ2024JP008434

PATIENT
  Age: 0 Year
  Sex: Female
  Weight: 2.782 kg

DRUGS (1)
  1. KESIMPTA [Suspect]
     Active Substance: OFATUMUMAB
     Indication: Foetal exposure during pregnancy
     Route: 064

REACTIONS (3)
  - Pertussis [Recovered/Resolved]
  - Foetal exposure during pregnancy [Unknown]
  - Normal newborn [Unknown]

NARRATIVE: CASE EVENT DATE: 20241006
